FAERS Safety Report 26141103 (Version 1)
Quarter: 2025Q4

REPORT INFORMATION
  Report Type: Spontaneous
  Country: US (occurrence: US)
  Receive Date: 20251210
  Receipt Date: 20251210
  Transmission Date: 20260118
  Serious: Yes (Hospitalization, Other)
  Sender: Kenvue
  Company Number: US-KENVUE-20251201888

PATIENT
  Age: 18 Year
  Sex: Male

DRUGS (1)
  1. BENADRYL [Suspect]
     Active Substance: DIPHENHYDRAMINE HYDROCHLORIDE
     Indication: Product used for unknown indication
     Dosage: 25 DOSAGE FORM, INGESTING 25 PILLS OF 25 MG BENADRYL

REACTIONS (9)
  - Suicide attempt [Unknown]
  - Hypoglycaemia [Recovered/Resolved]
  - Capillary nail refill test abnormal [Unknown]
  - Electrocardiogram QT interval abnormal [Recovering/Resolving]
  - Intentional overdose [Unknown]
  - Delirium [Not Recovered/Not Resolved]
  - Tachycardia [Recovering/Resolving]
  - Seizure [Unknown]
  - Hallucination [Not Recovered/Not Resolved]
